FAERS Safety Report 18008153 (Version 3)
Quarter: 2022Q1

REPORT INFORMATION
  Report Type: Spontaneous
  Country: US (occurrence: US)
  Receive Date: 20200710
  Receipt Date: 20220329
  Transmission Date: 20220424
  Serious: Yes (Other)
  Sender: FDA-Public Use
  Company Number: US-GLAXOSMITHKLINE-US2020126325

PATIENT
  Sex: Male

DRUGS (10)
  1. RANITIDINE [Suspect]
     Active Substance: RANITIDINE
  2. ZANTAC [Suspect]
     Active Substance: RANITIDINE HYDROCHLORIDE
  3. ZANTAC [Suspect]
     Active Substance: RANITIDINE HYDROCHLORIDE
     Indication: Dyspepsia
     Dosage: UNK UNK, QD
     Route: 065
     Dates: start: 199001, end: 201401
  4. ZANTAC [Suspect]
     Active Substance: RANITIDINE HYDROCHLORIDE
     Indication: Gastrooesophageal reflux disease
     Dosage: UNK UNK, QD
     Route: 065
     Dates: start: 199001, end: 201401
  5. ZANTAC [Suspect]
     Active Substance: RANITIDINE HYDROCHLORIDE
     Indication: Dyspepsia
     Dosage: UNK UNK, QD
     Route: 065
     Dates: start: 199001, end: 201401
  6. ZANTAC [Suspect]
     Active Substance: RANITIDINE HYDROCHLORIDE
     Indication: Gastrooesophageal reflux disease
     Dosage: UNK UNK, QD
     Route: 065
     Dates: start: 199001, end: 201401
  7. ZANTAC [Suspect]
     Active Substance: RANITIDINE HYDROCHLORIDE
     Indication: Dyspepsia
     Dosage: UNK UNK, QD
     Route: 065
     Dates: start: 199001, end: 201401
  8. ZANTAC [Suspect]
     Active Substance: RANITIDINE HYDROCHLORIDE
     Indication: Gastrooesophageal reflux disease
     Dosage: UNK
  9. RANITIDINE [Suspect]
     Active Substance: RANITIDINE
     Indication: Dyspepsia
     Dosage: UNK UNK, QD
     Route: 065
     Dates: start: 199001, end: 201401
  10. RANITIDINE [Suspect]
     Active Substance: RANITIDINE
     Indication: Gastrooesophageal reflux disease
     Dosage: UNK

REACTIONS (2)
  - Colorectal cancer [Unknown]
  - Colon cancer [Unknown]
